FAERS Safety Report 14138943 (Version 2)
Quarter: 2018Q2

REPORT INFORMATION
  Report Type: Report from Study
  Country: US (occurrence: US)
  Receive Date: 20171027
  Receipt Date: 20180410
  Transmission Date: 20180711
  Serious: No
  Sender: FDA-Public Use
  Company Number: US-009507513-1710USA004946

PATIENT
  Age: 20 Year
  Sex: Female
  Weight: 44.44 kg

DRUGS (1)
  1. IMPLANON [Suspect]
     Active Substance: ETONOGESTREL
     Dosage: 1 DF, UNK
     Route: 059
     Dates: start: 20170815

REACTIONS (4)
  - Device difficult to use [Recovered/Resolved]
  - No adverse event [Unknown]
  - Complication of device insertion [Recovered/Resolved]
  - Product quality issue [Unknown]

NARRATIVE: CASE EVENT DATE: 20170815
